FAERS Safety Report 19285267 (Version 1)
Quarter: 2021Q2

REPORT INFORMATION
  Report Type: Spontaneous
  Country: US (occurrence: US)
  Receive Date: 20210521
  Receipt Date: 20210521
  Transmission Date: 20210717
  Serious: No
  Sender: FDA-Public Use
  Company Number: US-RADIUS HEALTH INC.-2020US001926

PATIENT
  Sex: Female

DRUGS (1)
  1. TYMLOS [Suspect]
     Active Substance: ABALOPARATIDE
     Indication: OSTEOPOROSIS POSTMENOPAUSAL
     Dosage: 80 MCG, DAILY
     Route: 058

REACTIONS (9)
  - Irritability [Unknown]
  - Blood calcium increased [Unknown]
  - Thirst [Unknown]
  - Product quality issue [Recovered/Resolved]
  - Generalised oedema [Recovering/Resolving]
  - Abdominal distension [Unknown]
  - Visual acuity reduced [Unknown]
  - Discomfort [Unknown]
  - Product administered at inappropriate site [Recovered/Resolved]
